FAERS Safety Report 14240776 (Version 15)
Quarter: 2019Q3

REPORT INFORMATION
  Report Type: Report from Study
  Country: GB (occurrence: GB)
  Receive Date: 20171130
  Receipt Date: 20190828
  Transmission Date: 20191004
  Serious: Yes (Hospitalization)
  Sender: FDA-Public Use
  Company Number: GB-EISAI MEDICAL RESEARCH-EC-2017-033462

PATIENT
  Age: 25 Year
  Sex: Male
  Weight: 105.5 kg

DRUGS (21)
  1. ETOPOSIDE. [Suspect]
     Active Substance: ETOPOSIDE
     Route: 041
     Dates: start: 20171115, end: 20171116
  2. CODEINE [Concomitant]
     Active Substance: CODEINE
  3. AMOXICILLIN. [Concomitant]
     Active Substance: AMOXICILLIN
  4. ETOPOSIDE. [Suspect]
     Active Substance: ETOPOSIDE
     Indication: OSTEOSARCOMA
     Route: 041
     Dates: start: 20171114, end: 20171114
  5. ETOPOSIDE. [Suspect]
     Active Substance: ETOPOSIDE
     Route: 041
     Dates: start: 20171208, end: 201712
  6. IFOSFAMIDE. [Suspect]
     Active Substance: IFOSFAMIDE
     Indication: OSTEOSARCOMA
     Route: 041
     Dates: start: 20171114, end: 20171116
  7. NAPROXEN. [Concomitant]
     Active Substance: NAPROXEN
  8. LENVATINIB [Suspect]
     Active Substance: LENVATINIB
     Route: 048
     Dates: start: 20180109, end: 20180301
  9. LENVATINIB [Suspect]
     Active Substance: LENVATINIB
     Route: 048
     Dates: start: 20180417, end: 2018
  10. SANDO-K [Concomitant]
     Active Substance: POTASSIUM BICARBONATE\POTASSIUM CHLORIDE
  11. LENVATINIB [Suspect]
     Active Substance: LENVATINIB
     Indication: OSTEOSARCOMA
     Route: 048
     Dates: start: 20171114, end: 2018
  12. METOCLOPRAMIDE. [Concomitant]
     Active Substance: METOCLOPRAMIDE
  13. PROPRANOLOL [Concomitant]
     Active Substance: PROPRANOLOL HYDROCHLORIDE
  14. LENVATINIB [Suspect]
     Active Substance: LENVATINIB
     Dosage: DOSE UNKNOWN
     Route: 048
     Dates: start: 20180313, end: 20180403
  15. CYCLIZINE [Concomitant]
     Active Substance: CYCLIZINE
  16. LENVATINIB [Suspect]
     Active Substance: LENVATINIB
     Route: 048
     Dates: start: 2018, end: 20181126
  17. ETOPOSIDE. [Suspect]
     Active Substance: ETOPOSIDE
     Route: 041
     Dates: start: 20180109, end: 20180201
  18. AMITRIPTYLINE [Concomitant]
     Active Substance: AMITRIPTYLINE
  19. CHLORAMPHENICOL OINTMENT [Concomitant]
  20. IFOSFAMIDE. [Suspect]
     Active Substance: IFOSFAMIDE
     Route: 041
     Dates: start: 20180109, end: 20180202
  21. ORAMORPH [Concomitant]
     Active Substance: MORPHINE SULFATE

REACTIONS (4)
  - Pneumonia [Recovered/Resolved]
  - Febrile neutropenia [Recovered/Resolved]
  - Spinal cord compression [Not Recovered/Not Resolved]
  - Accidental overdose [Recovered/Resolved]

NARRATIVE: CASE EVENT DATE: 20171115
